FAERS Safety Report 6785523-2 (Version None)
Quarter: 2010Q2

REPORT INFORMATION
  Report Type: 
  Country: None (occurrence: None)
  Receive Date: 20100621
  Receipt Date: 20100621
  Transmission Date: 20101027
  Serious: Yes (Hospitalization)
  Sender: FDA-Public Use
  Company Number: None

PATIENT
  Age: 90 Year
  Weight: 41 kg

DRUGS (8)
  1. LOVENOX [Suspect]
     Indication: PROPHYLAXIS
  2. OSTEO [Concomitant]
  3. PUMPKIN SEEDS [Concomitant]
  4. AMLODIPINE/BENZAPRIL [Concomitant]
  5. VIT D [Concomitant]
  6. VIT B12 [Concomitant]
  7. ASCORBIC ACID [Concomitant]
  8. CA + MG CITRATE [Concomitant]

REACTIONS (6)
  - ANAEMIA [None]
  - DELIRIUM [None]
  - ECCHYMOSIS [None]
  - FRACTURE [None]
  - HAEMORRHAGE [None]
  - OEDEMA PERIPHERAL [None]
